FAERS Safety Report 25004834 (Version 3)
Quarter: 2025Q1

REPORT INFORMATION
  Report Type: Spontaneous
  Country: US (occurrence: US)
  Receive Date: 20250224
  Receipt Date: 20250328
  Transmission Date: 20250409
  Serious: Yes (Hospitalization, Disabling)
  Sender: PFIZER
  Company Number: US-PFIZER INC-202500041049

PATIENT
  Age: 55 Year
  Sex: Female
  Weight: 48.073 kg

DRUGS (2)
  1. DIFLUCAN [Suspect]
     Active Substance: FLUCONAZOLE
     Indication: Fungal infection
     Dosage: 150 MG, 1X/DAY
     Route: 048
     Dates: start: 20250204, end: 20250204
  2. ERYTHROMYCIN [Concomitant]
     Active Substance: ERYTHROMYCIN
     Indication: Eye infection
     Dosage: 3X/DAY

REACTIONS (11)
  - Drug hypersensitivity [Not Recovered/Not Resolved]
  - Vomiting [Not Recovered/Not Resolved]
  - Myalgia [Not Recovered/Not Resolved]
  - Diarrhoea [Not Recovered/Not Resolved]
  - Burning sensation [Not Recovered/Not Resolved]
  - Heart rate increased [Recovering/Resolving]
  - Perineal pain [Not Recovered/Not Resolved]
  - Muscle twitching [Recovering/Resolving]
  - Urticaria [Recovering/Resolving]
  - Vertigo [Recovering/Resolving]
  - Vulvovaginal swelling [Not Recovered/Not Resolved]

NARRATIVE: CASE EVENT DATE: 20250210
